FAERS Safety Report 5622882-8 (Version None)
Quarter: 2008Q1

REPORT INFORMATION
  Report Type: 
  Country: None (occurrence: None)
  Receive Date: 20080205
  Receipt Date: 20080129
  Transmission Date: 20080703
  Serious: Yes (Death)
  Sender: FDA-Public Use
  Company Number: B0505919A

PATIENT

DRUGS (3)
  1. ZIDOVUDINE                (GENERIC) [Suspect]
     Indication: HIV INFECTION
     Dosage: 300 MG / TWICE PER DAY / ORAL
     Route: 048
  2. LAMIVUDINE TABLET (LAMIVUDINE) (GENERIC) [Suspect]
     Indication: HIV INFECTION
     Dosage: 150 MG / TWICE PER DAY / ORAL
     Route: 048
  3. INDINAVIR SULFATE (INDINAVIR SULFATE) (FORMULATION UNKNOWN) [Suspect]
     Indication: HIV INFECTION
     Dosage: 800 MG / SEE DOSAGE TEXT / UNKNOWN

REACTIONS (1)
  - HEPATIC FAILURE [None]
